FAERS Safety Report 7259800-5 (Version None)
Quarter: 2011Q1

REPORT INFORMATION
  Report Type: 
  Country: None (occurrence: None)
  Receive Date: 20110130
  Receipt Date: 20100903
  Transmission Date: 20110831
  Serious: No
  Sender: FDA-Public Use
  Company Number: US-ABBOTT-10P-163-0668920-00

PATIENT
  Age: 39 Year
  Sex: Female

DRUGS (6)
  1. HUMIRA [Suspect]
     Indication: PSORIATIC ARTHROPATHY
     Dates: start: 20100701
  2. PREDNISONE [Concomitant]
     Indication: ARTHRITIS
     Dosage: 5MG TO 15MG
  3. AMITRIPTYLINE HCL [Concomitant]
     Indication: PAIN
  4. FOLIC ACID [Concomitant]
     Indication: PRODUCT USED FOR UNKNOWN INDICATION
  5. FELUXAFINE [Concomitant]
     Indication: SINUS TACHYCARDIA
  6. METHOTREXATE [Concomitant]
     Indication: ARTHRITIS
     Route: 050

REACTIONS (2)
  - FALL [None]
  - JOINT SPRAIN [None]
